FAERS Safety Report 11289024 (Version 5)
Quarter: 2017Q2

REPORT INFORMATION
  Report Type: Spontaneous
  Country: JP (occurrence: JP)
  Receive Date: 20150721
  Receipt Date: 20170615
  Transmission Date: 20170829
  Serious: Yes (Other)
  Sender: FDA-Public Use
  Company Number: JP-ASTRAZENECA-2015SE68282

PATIENT
  Age: 26 Year
  Sex: Female
  Weight: 58 kg

DRUGS (11)
  1. HERBAL NOS [Concomitant]
     Active Substance: HERBALS
     Indication: VIRAL UPPER RESPIRATORY TRACT INFECTION
     Dosage: DOSE UNKNOWN
     Route: 065
     Dates: start: 20150531
  2. VENETLIN [Concomitant]
     Active Substance: ALBUTEROL SULFATE
     Indication: ASTHMA
     Dosage: DOSE UNKNOWN
     Route: 055
     Dates: start: 20150605
  3. INTAL [Concomitant]
     Active Substance: CROMOLYN SODIUM
     Indication: ASTHMA
     Dosage: DOSE UNKNOWN
     Route: 065
     Dates: start: 20150602
  4. PREDONINE [Concomitant]
     Active Substance: PREDNISOLONE
     Indication: ASTHMA
     Dosage: 20.0MG UNKNOWN
     Route: 048
     Dates: start: 20150614, end: 20150615
  5. CEFDITOREN PIVOXIL. [Suspect]
     Active Substance: CEFDITOREN PIVOXIL
     Indication: BRONCHITIS
     Route: 048
     Dates: start: 20150608, end: 20150612
  6. SYMBICORT [Suspect]
     Active Substance: BUDESONIDE\FORMOTEROL FUMARATE DIHYDRATE
     Indication: ASTHMA
     Dosage: 4 DF TWICE DAILY
     Route: 055
     Dates: start: 20150605, end: 20150615
  7. CEFTRIAXONE. [Suspect]
     Active Substance: CEFTRIAXONE
     Indication: BRONCHITIS
     Route: 041
     Dates: start: 20150613, end: 20150615
  8. PREDONINE [Concomitant]
     Active Substance: PREDNISOLONE
     Indication: ASTHMA
     Route: 048
     Dates: start: 20150608, end: 20150613
  9. MEDICON [Concomitant]
     Active Substance: DEXTROMETHORPHAN HYDROBROMIDE
     Indication: VIRAL UPPER RESPIRATORY TRACT INFECTION
     Dosage: DOSE UNKNOWN
     Route: 065
     Dates: start: 20150531
  10. SYMBICORT [Suspect]
     Active Substance: BUDESONIDE\FORMOTEROL FUMARATE DIHYDRATE
     Indication: ASTHMA
     Dosage: 2 DF TWICE DAILY
     Route: 055
     Dates: start: 20150602, end: 20150604
  11. POLARAMINE [Suspect]
     Active Substance: DEXCHLORPHENIRAMINE MALEATE
     Indication: RHINITIS ALLERGIC
     Route: 048
     Dates: start: 20150608, end: 20150615

REACTIONS (3)
  - Pharyngitis [Recovered/Resolved]
  - Stevens-Johnson syndrome [Recovered/Resolved]
  - Erythema multiforme [Recovered/Resolved]

NARRATIVE: CASE EVENT DATE: 20150613
